FAERS Safety Report 22359170 (Version 2)
Quarter: 2023Q2

REPORT INFORMATION
  Report Type: Report from Study
  Country: US (occurrence: US)
  Receive Date: 20230524
  Receipt Date: 20230529
  Transmission Date: 20230721
  Serious: Yes (Death, Hospitalization)
  Sender: FDA-Public Use
  Company Number: US-002147023-NVSC2023US117743

PATIENT
  Sex: Male

DRUGS (3)
  1. SANDOSTATIN LAR DEPOT [Suspect]
     Active Substance: OCTREOTIDE ACETATE
     Indication: Product used for unknown indication
     Dosage: UNK
     Route: 065
  2. SANDOSTATIN LAR DEPOT [Suspect]
     Active Substance: OCTREOTIDE ACETATE
  3. SANDOSTATIN LAR DEPOT [Suspect]
     Active Substance: OCTREOTIDE ACETATE

REACTIONS (10)
  - Septic shock [Fatal]
  - Gait disturbance [Unknown]
  - Limb discomfort [Unknown]
  - Fall [Unknown]
  - Citrobacter infection [Unknown]
  - Embolic stroke [Unknown]
  - Loss of consciousness [Unknown]
  - Lactic acidosis [Unknown]
  - Acute kidney injury [Unknown]
  - Asthenia [Unknown]
